FAERS Safety Report 6417040-3 (Version None)
Quarter: 2009Q4

REPORT INFORMATION
  Report Type: 
  Country: None (occurrence: None)
  Receive Date: 20091026
  Receipt Date: 20091014
  Transmission Date: 20100525
  Serious: Yes (Death)
  Sender: FDA-Public Use
  Company Number: GXKR2009DK09285

PATIENT
  Age: 77 Year
  Sex: Female

DRUGS (1)
  1. AMLODIPINE [Suspect]
     Indication: HYPERTENSION
     Dosage: 5 MG, QD, ORAL
     Route: 048
     Dates: start: 20060530

REACTIONS (22)
  - ARTERIOSCLEROSIS [None]
  - ARTERIOSCLEROSIS CORONARY ARTERY [None]
  - CEREBRAL HAEMORRHAGE [None]
  - CORONARY ARTERY STENOSIS [None]
  - DRUG LEVEL INCREASED [None]
  - DRUG TOXICITY [None]
  - EMPHYSEMA [None]
  - FIBULA FRACTURE [None]
  - HUMERUS FRACTURE [None]
  - HYPERTENSION [None]
  - LIVER INJURY [None]
  - NEPHROSCLEROSIS [None]
  - PELVIC FRACTURE [None]
  - PULMONARY HAEMATOMA [None]
  - PULMONARY HAEMORRHAGE [None]
  - RENAL CYST [None]
  - RIB FRACTURE [None]
  - ROAD TRAFFIC ACCIDENT [None]
  - SKULL FRACTURE [None]
  - STERNAL FRACTURE [None]
  - THERMAL BURN [None]
  - TRAUMATIC LUNG INJURY [None]
